FAERS Safety Report 22185995 (Version 1)
Quarter: 2023Q2

REPORT INFORMATION
  Report Type: Spontaneous
  Country: US (occurrence: US)
  Receive Date: 20230407
  Receipt Date: 20230407
  Transmission Date: 20230722
  Serious: No
  Sender: FDA-Public Use
  Company Number: US-AMGEN-USASP2023056941

PATIENT
  Age: 41 Year
  Sex: Female
  Weight: 178.4 kg

DRUGS (1)
  1. MVASI [Suspect]
     Active Substance: BEVACIZUMAB-AWWB
     Indication: Ovarian cancer
     Dosage: 2700 MILLIGRAM
     Route: 065

REACTIONS (1)
  - Off label use [Unknown]
